FAERS Safety Report 15436389 (Version 2)
Quarter: 2019Q3

REPORT INFORMATION
  Report Type: Spontaneous
  Country: GB (occurrence: GB)
  Receive Date: 20180927
  Receipt Date: 20190808
  Transmission Date: 20191004
  Serious: Yes (Hospitalization)
  Sender: FDA-Public Use
  Company Number: GB-PFIZER INC-2018382263

PATIENT
  Age: 16 Year
  Sex: Female
  Weight: 68.7 kg

DRUGS (4)
  1. METHOTREXATE SODIUM. [Suspect]
     Active Substance: METHOTREXATE SODIUM
     Indication: SCLERODERMA
     Dosage: 17.5 MG, WEEKLY
     Route: 058
     Dates: start: 20180827, end: 20180827
  2. SALBUTAMOL [Concomitant]
     Active Substance: ALBUTEROL
  3. QVAR [Concomitant]
     Active Substance: BECLOMETHASONE DIPROPIONATE
  4. METHYLPREDNISOLONE SODIUM SUCCINATE. [Suspect]
     Active Substance: METHYLPREDNISOLONE SODIUM SUCCINATE
     Indication: SCLERODERMA
     Dosage: 1 G, 1X/DAY
     Route: 042
     Dates: start: 20180824, end: 20180824

REACTIONS (9)
  - Nausea [Unknown]
  - Dizziness [Unknown]
  - Generalised tonic-clonic seizure [Recovered/Resolved]
  - Off label use [Unknown]
  - Sensory disturbance [Unknown]
  - Headache [Unknown]
  - Malaise [Unknown]
  - Posterior reversible encephalopathy syndrome [Unknown]
  - Product use in unapproved indication [Unknown]

NARRATIVE: CASE EVENT DATE: 201808
